FAERS Safety Report 9705931 (Version 2)
Quarter: 2014Q2

REPORT INFORMATION
  Report Type: Spontaneous
  Country: US (occurrence: US)
  Receive Date: 20131122
  Receipt Date: 20140521
  Transmission Date: 20141212
  Serious: Yes (Hospitalization)
  Sender: FDA-Public Use
  Company Number: US-B.I. PHARMACEUTICALS,INC./RIDGEFIELD-2013-BI-38682BP

PATIENT
  Age: 64 Year
  Sex: Male
  Weight: 99.79 kg

DRUGS (9)
  1. PRADAXA [Suspect]
     Indication: ATRIAL FIBRILLATION
     Dosage: 300 MG
     Route: 048
     Dates: start: 201203, end: 20120319
  2. LANTUS [Concomitant]
     Route: 065
  3. LOPID [Concomitant]
     Route: 065
  4. NIASPAN [Concomitant]
     Route: 065
  5. COZAAR [Concomitant]
     Route: 065
  6. COREG [Concomitant]
     Route: 065
  7. AMARYL [Concomitant]
     Route: 065
  8. ZOLOFT [Concomitant]
     Route: 065
  9. ASPIRIN [Concomitant]
     Route: 065

REACTIONS (3)
  - Gastrointestinal haemorrhage [Recovered/Resolved]
  - Cerebrovascular accident [Unknown]
  - Anaemia [Unknown]
